FAERS Safety Report 8496547-1 (Version None)
Quarter: 2012Q3

REPORT INFORMATION
  Report Type: 
  Country: None (occurrence: None)
  Receive Date: 20120709
  Receipt Date: 20120627
  Transmission Date: 20120928
  Serious: Yes (Hospitalization, Disabling, Other)
  Sender: FDA-Public Use
  Company Number: CO-ELI_LILLY_AND_COMPANY-CO201206009734

PATIENT
  Age: 61 Year
  Sex: Male

DRUGS (8)
  1. HUMULIN N [Suspect]
     Indication: TYPE 2 DIABETES MELLITUS
     Dosage: 15 U, QD
     Route: 058
  2. HUMALOG [Suspect]
     Indication: TYPE 2 DIABETES MELLITUS
     Dosage: 5 U, BID
     Route: 058
     Dates: start: 20120301
  3. FUROSEMIDE [Concomitant]
  4. LOVASTATIN [Concomitant]
  5. VERAPAMIL [Concomitant]
  6. ACETYLSALICYLIC ACID SRT [Concomitant]
  7. LOSARTAN POTASSIUM [Concomitant]
  8. ALLOPURINOL [Concomitant]

REACTIONS (5)
  - CHILLS [None]
  - BLINDNESS [None]
  - HEADACHE [None]
  - DIZZINESS [None]
  - PYREXIA [None]
